FAERS Safety Report 5064563-8 (Version None)
Quarter: 2006Q3

REPORT INFORMATION
  Report Type: 
  Country: None (occurrence: None)
  Receive Date: 20060706
  Receipt Date: 20060223
  Transmission Date: 20061208
  Serious: No
  Sender: FDA-Public Use
  Company Number: 200611018BWH

PATIENT
  Age: 54 Year
  Sex: Male

DRUGS (3)
  1. LEVITRA [Suspect]
     Indication: ERECTILE DYSFUNCTION
     Dosage: 20 MG, TOTAL DAILY,ORAL
     Route: 048
  2. EXTENDED RELEASE MORPHINE [Concomitant]
  3. CODEINE [Concomitant]

REACTIONS (1)
  - ERECTILE DYSFUNCTION [None]
